FAERS Safety Report 11350452 (Version 2)
Quarter: 2015Q3

REPORT INFORMATION
  Report Type: Spontaneous
  Country: DK (occurrence: DK)
  Receive Date: 20150807
  Receipt Date: 20150814
  Transmission Date: 20151125
  Serious: Yes (Hospitalization)
  Sender: FDA-Public Use
  Company Number: DK-TEVA-583278ISR

PATIENT
  Age: 33 Year
  Sex: Female

DRUGS (2)
  1. MALFIN [Suspect]
     Active Substance: MORPHINE SULFATE
     Indication: PAIN
     Dosage: 10 MILLIGRAM DAILY;
     Route: 048
     Dates: start: 20140302, end: 20140302
  2. MORFIN ^SAD^ [Suspect]
     Active Substance: MORPHINE HYDROCHLORIDE
     Indication: PAIN
     Dosage: 10 MILLIGRAM DAILY;
     Route: 030
     Dates: start: 20140302, end: 20140302

REACTIONS (14)
  - Suicide attempt [Recovered/Resolved]
  - Hallucination [Unknown]
  - Suicidal ideation [Unknown]
  - Anxiety [Unknown]
  - Psychotic behaviour [Unknown]
  - Acute stress disorder [Unknown]
  - Delusion [Unknown]
  - Tachyphrenia [Unknown]
  - Depression [Unknown]
  - Violence-related symptom [Unknown]
  - Crying [Unknown]
  - Feeling abnormal [Unknown]
  - Movement disorder [Unknown]
  - Decreased eye contact [Unknown]

NARRATIVE: CASE EVENT DATE: 201403
